FAERS Safety Report 22189766 (Version 1)
Quarter: 2023Q2

REPORT INFORMATION
  Report Type: Spontaneous
  Country: ES (occurrence: ES)
  Receive Date: 20230410
  Receipt Date: 20230410
  Transmission Date: 20230722
  Serious: Yes (Hospitalization)
  Sender: FDA-Public Use
  Company Number: None

PATIENT
  Age: 89 Year
  Sex: Female

DRUGS (7)
  1. AMOXICILLIN\CLAVULANATE POTASSIUM [Suspect]
     Active Substance: AMOXICILLIN\CLAVULANATE POTASSIUM
     Indication: Urinary tract infection
     Dosage: UNK, 1.0 COMP C/8 HORAS
     Route: 048
     Dates: start: 20221113, end: 20221114
  2. CARVEDILOL [Concomitant]
     Active Substance: CARVEDILOL
     Indication: Atrial fibrillation
     Dosage: 6.25 MG, DE
     Route: 048
     Dates: start: 20210909
  3. NOLOTIL [Concomitant]
     Indication: Headache
     Dosage: 575.0 MG, C/24 H
     Route: 048
     Dates: start: 20220525
  4. ACETAMINOPHEN [Concomitant]
     Active Substance: ACETAMINOPHEN
     Indication: Headache
     Dosage: 650 MG, C/8 HORAS
     Route: 048
     Dates: start: 20211211
  5. FUROSEMIDE [Concomitant]
     Active Substance: FUROSEMIDE
     Indication: Wound
     Dosage: 40 MG,  A-DE
     Route: 048
     Dates: start: 20220923
  6. GABAPENTIN [Concomitant]
     Active Substance: GABAPENTIN
     Indication: Headache
     Dosage: 100 MG, CE
     Route: 048
     Dates: start: 20211028
  7. ELIQUIS [Concomitant]
     Active Substance: APIXABAN
     Indication: Atrial fibrillation
     Dosage: 2.5 MG, C/12 H
     Route: 048
     Dates: start: 20210607

REACTIONS (3)
  - Chills [Recovered/Resolved]
  - Tremor [Recovered/Resolved]
  - Vomiting [Recovered/Resolved]

NARRATIVE: CASE EVENT DATE: 20221114
